FAERS Safety Report 6818013-9 (Version None)
Quarter: 2010Q3

REPORT INFORMATION
  Report Type: 
  Country: None (occurrence: None)
  Receive Date: 20100706
  Receipt Date: 20100623
  Transmission Date: 20110219
  Serious: Yes (Other)
  Sender: FDA-Public Use
  Company Number: US-PFIZER INC-2010058772

PATIENT
  Sex: Female
  Weight: 68.991 kg

DRUGS (6)
  1. TOVIAZ [Interacting]
     Indication: URINARY INCONTINENCE
     Dosage: 4 MG, 1X/DAY
     Route: 048
     Dates: start: 20100101
  2. TOVIAZ [Interacting]
     Dosage: UNK
     Dates: start: 20091201
  3. KLOR-CON [Suspect]
     Dosage: 10 MEQ, 1X/DAY
  4. ATENOLOL/HYDROCHLOROTHIAZIDE [Concomitant]
     Indication: HYPERTENSION
     Dosage: [ATENOLOL 50MG]/[HYDROCHLOROTHIAZIDE 25 MG]
  5. PREMARIN [Concomitant]
     Dosage: 0.65 MG, UNK
  6. PROZAC [Concomitant]
     Dosage: 20 MG, UNK

REACTIONS (1)
  - DRUG INTERACTION [None]
